FAERS Safety Report 17588843 (Version 1)
Quarter: 2020Q1

REPORT INFORMATION
  Report Type: Spontaneous
  Country: NL (occurrence: NL)
  Receive Date: 20200327
  Receipt Date: 20200327
  Transmission Date: 20200409
  Serious: Yes (Other)
  Sender: FDA-Public Use
  Company Number: NL-TEVA-2020-NL-1211212

PATIENT
  Age: 67 Year
  Sex: Male
  Weight: 125 kg

DRUGS (2)
  1. NITROFURANTOINE [Suspect]
     Active Substance: NITROFURANTOIN
     Indication: PROPHYLAXIS URINARY TRACT INFECTION
     Dosage: 50 MILLIGRAM DAILY;
     Dates: start: 201402, end: 20161013
  2. ZANTAC [Concomitant]
     Active Substance: RANITIDINE HYDROCHLORIDE
     Dosage: 150 MG

REACTIONS (8)
  - Vasculitis [Recovered/Resolved]
  - Purpura [Recovered/Resolved]
  - Portal hypertension [Recovering/Resolving]
  - Erythema [Recovered/Resolved]
  - Eczema [Recovered/Resolved]
  - Oedema [Recovered/Resolved]
  - Toxic skin eruption [Recovered/Resolved]
  - Hepatic cirrhosis [Recovering/Resolving]

NARRATIVE: CASE EVENT DATE: 20161018
